FAERS Safety Report 8920409 (Version 2)
Quarter: 2013Q1

REPORT INFORMATION
  Report Type: Report from Study
  Country: ES (occurrence: ES)
  Receive Date: 20121122
  Receipt Date: 20130225
  Transmission Date: 20140127
  Serious: Yes (Death, Hospitalization)
  Sender: FDA-Public Use
  Company Number: ES-US-EMD SERONO, INC.-7177378

PATIENT
  Sex: Male

DRUGS (1)
  1. REBIF [Suspect]
     Indication: RELAPSING-REMITTING MULTIPLE SCLEROSIS
     Route: 058
     Dates: start: 200502, end: 201201

REACTIONS (3)
  - Cerebral artery embolism [Fatal]
  - Atrial fibrillation [Fatal]
  - Acute pulmonary oedema [Fatal]
